FAERS Safety Report 4972662-1 (Version None)
Quarter: 2006Q1

REPORT INFORMATION
  Report Type: 
  Country: None (occurrence: None)
  Receive Date: 20060216
  Receipt Date: 20050817
  Transmission Date: 20060701
  Serious: Yes (Hospitalization)
  Sender: FDA-Public Use
  Company Number: 200508IM000429

PATIENT
  Age: 54 Year
  Sex: Male
  Weight: 86.1834 kg

DRUGS (6)
  1. BLINDED THERAPY (INTERFERON GAMMA-1B) [Suspect]
     Indication: IDIOPATHIC PULMONARY FIBROSIS
     Dosage: 100 UG, TIW, SUBCUTANEOUS; 200 UG, TIW, SUBCUTANEOUS
     Route: 058
     Dates: start: 20050728, end: 20050806
  2. BLINDED THERAPY (INTERFERON GAMMA-1B) [Suspect]
     Indication: IDIOPATHIC PULMONARY FIBROSIS
     Dosage: 100 UG, TIW, SUBCUTANEOUS; 200 UG, TIW, SUBCUTANEOUS
     Route: 058
     Dates: start: 20050808
  3. LOVASTATIN [Concomitant]
  4. METOPROLOL TARTRATE [Concomitant]
  5. TESTOSTERONE [Concomitant]
  6. ALBUTEROL SULFATE AUTOHALER [Concomitant]

REACTIONS (1)
  - CHEST PAIN [None]
